FAERS Safety Report 6020677-7 (Version None)
Quarter: 2008Q4

REPORT INFORMATION
  Report Type: 
  Country: None (occurrence: None)
  Receive Date: 20081223
  Receipt Date: 20081223
  Transmission Date: 20090506
  Serious: Yes (Other)
  Sender: FDA-Public Use
  Company Number: None

PATIENT
  Age: 84 Year
  Sex: Female
  Weight: 57.1532 kg

DRUGS (10)
  1. GAMUNEX [Suspect]
     Indication: HYPOGAMMAGLOBULINAEMIA
     Dosage: 25 GRAMS EVERY MONTH IV DRIP
     Route: 041
     Dates: start: 20081215, end: 20081215
  2. GAMUNEX [Suspect]
  3. APAP TAB [Concomitant]
  4. CALCIUM [Concomitant]
  5. CHONDROITIN SO4 [Concomitant]
  6. CLONAZEPAM [Concomitant]
  7. GLUCOSAMINE [Concomitant]
  8. METAMUCIL [Concomitant]
  9. PAXIL [Concomitant]
  10. PREVACID [Concomitant]

REACTIONS (2)
  - ERYTHEMA [None]
  - PRURITUS [None]
